FAERS Safety Report 4528365-0 (Version None)
Quarter: 2004Q4

REPORT INFORMATION
  Report Type: 
  Country: None (occurrence: None)
  Receive Date: 20041126
  Receipt Date: 20040910
  Transmission Date: 20050328
  Serious: No
  Sender: FDA-Public Use
  Company Number: 2004US002235

PATIENT
  Age: 44 Year
  Sex: Female
  Weight: 81.6 kg

DRUGS (8)
  1. ALOXI [Suspect]
     Indication: PROPHYLAXIS OF NAUSEA AND VOMITING
     Dosage: 0.25 MG, SINGLE, INTRAVENOUS
     Route: 042
     Dates: start: 20040730, end: 20040730
  2. ALOXI [Suspect]
     Indication: PROPHYLAXIS OF NAUSEA AND VOMITING
     Dosage: 0.25 MG, SINGLE, INTRAVENOUS
     Route: 042
     Dates: start: 20040820, end: 20040820
  3. PAXIL [Suspect]
     Indication: PANIC ATTACK
     Dosage: 20 MG, QD, ORAL
     Route: 048
  4. DECADRON [Concomitant]
  5. ATIVAN [Concomitant]
  6. CYTOXAN [Concomitant]
  7. ADRIAMYCIN PFS [Concomitant]
  8. COMPAZINE [Concomitant]

REACTIONS (1)
  - HEADACHE [None]
